FAERS Safety Report 21110690 (Version 1)
Quarter: 2022Q3

REPORT INFORMATION
  Report Type: Spontaneous
  Country: US (occurrence: US)
  Receive Date: 20220721
  Receipt Date: 20220721
  Transmission Date: 20221026
  Serious: No
  Sender: FDA-Public Use
  Company Number: US-GLAXOSMITHKLINE-USCH2022025299

PATIENT

DRUGS (1)
  1. ADVIL PM [Suspect]
     Active Substance: DIPHENHYDRAMINE CITRATE\IBUPROFEN
     Indication: Sleep disorder
     Dosage: 2 DF

REACTIONS (4)
  - Insomnia [Unknown]
  - Nightmare [Unknown]
  - Abdominal distension [Unknown]
  - Expired product administered [Unknown]

NARRATIVE: CASE EVENT DATE: 20220718
